FAERS Safety Report 20499725 (Version 1)
Quarter: 2022Q1

REPORT INFORMATION
  Report Type: Spontaneous
  Country: US (occurrence: US)
  Receive Date: 20220222
  Receipt Date: 20220222
  Transmission Date: 20220423
  Serious: No
  Sender: FDA-Public Use
  Company Number: US-UCBSA-2020053986

PATIENT
  Age: 67 Year
  Sex: Female

DRUGS (5)
  1. LEVETIRACETAM [Suspect]
     Active Substance: LEVETIRACETAM
     Indication: Generalised tonic-clonic seizure
     Dosage: LOW DOSE
  2. LEVETIRACETAM [Suspect]
     Active Substance: LEVETIRACETAM
     Dosage: SLOWLY TITRATED UP TO 1500 MG TWICE A DAY
  3. PHENYTOIN [Concomitant]
     Active Substance: PHENYTOIN
     Indication: Generalised tonic-clonic seizure
  4. PRIMIDONE [Concomitant]
     Active Substance: PRIMIDONE
     Indication: Generalised tonic-clonic seizure
  5. PROPRANOLOL [Concomitant]
     Active Substance: PROPRANOLOL HYDROCHLORIDE
     Indication: Generalised tonic-clonic seizure

REACTIONS (2)
  - Gait disturbance [Unknown]
  - Tremor [Recovered/Resolved]
